FAERS Safety Report 4487892-5 (Version None)
Quarter: 2004Q4

REPORT INFORMATION
  Report Type: 
  Country: None (occurrence: None)
  Receive Date: 20041026
  Receipt Date: 20041012
  Transmission Date: 20050328
  Serious: Yes (Other)
  Sender: FDA-Public Use
  Company Number: USA040978079

PATIENT
  Age: 10 Year
  Sex: Female
  Weight: 27 kg

DRUGS (1)
  1. STRATTERA [Suspect]
     Indication: ATTENTION DEFICIT/HYPERACTIVITY DISORDER
     Dosage: 10 MG DAY
     Route: 048
     Dates: start: 20040808, end: 20040901

REACTIONS (8)
  - BLOOD GLUCOSE INCREASED [None]
  - CONVULSION [None]
  - DEPRESSED LEVEL OF CONSCIOUSNESS [None]
  - DYSTONIA [None]
  - ELECTROENCEPHALOGRAM ABNORMAL [None]
  - MUCOUS MEMBRANE DISORDER [None]
  - SOMNOLENCE [None]
  - SPEECH DISORDER [None]
